FAERS Safety Report 4534039-2 (Version None)
Quarter: 2004Q4

REPORT INFORMATION
  Report Type: 
  Country: None (occurrence: None)
  Receive Date: 20041222
  Receipt Date: 20041125
  Transmission Date: 20050328
  Serious: Yes (Death)
  Sender: FDA-Public Use
  Company Number: 200413612JP

PATIENT
  Age: 70 Year
  Sex: Male
  Weight: 52.6 kg

DRUGS (4)
  1. TAXOTERE [Suspect]
     Indication: NON-SMALL CELL LUNG CANCER
     Route: 041
     Dates: start: 20040713, end: 20040914
  2. DECADRON [Concomitant]
     Indication: ANTIEMETIC SUPPORTIVE CARE
     Route: 041
     Dates: start: 20040713, end: 20040914
  3. KYTRIL [Concomitant]
     Indication: ANTIEMETIC SUPPORTIVE CARE
     Route: 041
     Dates: start: 20040713, end: 20040914
  4. NEU-UP [Concomitant]
     Indication: NEUTROPHIL COUNT DECREASED
     Route: 058
     Dates: start: 20040817, end: 20040922

REACTIONS (6)
  - DRUG INEFFECTIVE [None]
  - DYSPNOEA EXERTIONAL [None]
  - INTERSTITIAL LUNG DISEASE [None]
  - MALIGNANT PLEURAL EFFUSION [None]
  - NEUTROPENIA [None]
  - RESPIRATORY FAILURE [None]
